FAERS Safety Report 23112546 (Version 1)
Quarter: 2023Q4

REPORT INFORMATION
  Report Type: Spontaneous
  Country: ES (occurrence: ES)
  Receive Date: 20231027
  Receipt Date: 20231027
  Transmission Date: 20240110
  Serious: Yes (Other)
  Sender: FDA-Public Use
  Company Number: ES-SAMSUNG BIOEPIS-SB-2022-12188

PATIENT
  Age: 40 Year
  Sex: Female

DRUGS (13)
  1. ADALIMUMAB [Suspect]
     Active Substance: ADALIMUMAB\ISOPROPYL ALCOHOL
     Indication: Rheumatoid arthritis
     Dosage: 20 MG, QD
     Route: 065
  2. ASPIRIN [Suspect]
     Active Substance: ASPIRIN
     Indication: Antiphospholipid syndrome
     Dosage: 100 MG, QD
     Route: 065
  3. ESTRADIOL [Suspect]
     Active Substance: ESTRADIOL
     Indication: Supportive care
     Dosage: 2 MG, QD
     Route: 065
  4. HYDROXYCHLOROQUINE [Suspect]
     Active Substance: HYDROXYCHLOROQUINE
     Indication: Rheumatoid arthritis
     Dosage: 400 MG, QD
     Route: 065
  5. LEVOLEUCOVORIN CALCIUM [Suspect]
     Active Substance: LEVOLEUCOVORIN CALCIUM
     Indication: Prophylaxis
     Dosage: 5 MG, QD
     Route: 065
  6. LEVOTHYROXINE [Suspect]
     Active Substance: LEVOTHYROXINE
     Indication: Hypothyroidism
     Dosage: 50 MILLIGRAM, QD
     Route: 065
  7. OXYTOCIN [Suspect]
     Active Substance: OXYTOCIN
     Indication: Labour induction
     Dosage: UNKNOWN
     Route: 065
  8. PREDNISONE [Suspect]
     Active Substance: PREDNISONE
     Dosage: 20 MG, QD
     Route: 065
  9. PREDNISONE [Suspect]
     Active Substance: PREDNISONE
     Dosage: 30 MG, QD
     Route: 065
  10. PREDNISONE [Suspect]
     Active Substance: PREDNISONE
     Indication: Rheumatoid arthritis
     Dosage: UNKNOWN TAPERING DOSE
     Route: 065
  11. PROGESTERONE [Suspect]
     Active Substance: PROGESTERONE
     Dosage: 800 MG, QD
     Route: 065
  12. PROGESTERONE [Suspect]
     Active Substance: PROGESTERONE
     Indication: Supportive care
     Dosage: UNK (TAPPERING DOSE)
     Route: 065
  13. TINZAPARIN [Suspect]
     Active Substance: TINZAPARIN
     Indication: Antiphospholipid syndrome
     Dosage: 5700 IU, QD
     Route: 065

REACTIONS (8)
  - Failed induction of labour [Unknown]
  - Hypothyroidism [Unknown]
  - In vitro fertilisation [Unknown]
  - Anxiety [Unknown]
  - Maternal exposure during pregnancy [Recovered/Resolved]
  - Off label use [Unknown]
  - Drug ineffective [Unknown]
  - Normal newborn [Recovered/Resolved]
